FAERS Safety Report 18979169 (Version 3)
Quarter: 2021Q2

REPORT INFORMATION
  Report Type: Spontaneous
  Country: US (occurrence: US)
  Receive Date: 20210308
  Receipt Date: 20210525
  Transmission Date: 20210717
  Serious: Yes (Hospitalization, Other)
  Sender: FDA-Public Use
  Company Number: US-B.I. PHARMACEUTICALS,INC./RIDGEFIELD-2021-BI-087218

PATIENT
  Age: 82 Year
  Sex: Female

DRUGS (1)
  1. TRADJENTA [Suspect]
     Active Substance: LINAGLIPTIN
     Indication: TYPE 2 DIABETES MELLITUS
     Dosage: NR
     Dates: start: 202003

REACTIONS (6)
  - Asthenia [Not Recovered/Not Resolved]
  - Peripheral artery thrombosis [Recovering/Resolving]
  - Limb discomfort [Not Recovered/Not Resolved]
  - Diverticulitis [Recovering/Resolving]
  - Colitis ischaemic [Recovering/Resolving]
  - Arterial occlusive disease [Recovering/Resolving]

NARRATIVE: CASE EVENT DATE: 20210128
